FAERS Safety Report 9483221 (Version 1)
Quarter: 2013Q3

REPORT INFORMATION
  Report Type: Spontaneous
  Country: DE (occurrence: DE)
  Receive Date: 20130828
  Receipt Date: 20130828
  Transmission Date: 20140515
  Serious: Yes (Hospitalization)
  Sender: FDA-Public Use
  Company Number: DE-UCBSA-096293

PATIENT
  Age: 92 Year
  Sex: Female

DRUGS (2)
  1. KEPPRA [Suspect]
     Indication: CONVULSION
     Dosage: UNKNOWN DOSE
     Dates: end: 2013
  2. KEPPRA [Suspect]
     Indication: CONVULSION
     Dates: start: 2013

REACTIONS (5)
  - Apathy [Unknown]
  - Unresponsive to stimuli [Unknown]
  - Somnolence [Unknown]
  - Lethargy [Unknown]
  - Disturbance in attention [Unknown]
